FAERS Safety Report 13989202 (Version 2)
Quarter: 2017Q4

REPORT INFORMATION
  Report Type: Report from Study
  Country: BR (occurrence: BR)
  Receive Date: 20170920
  Receipt Date: 20171005
  Transmission Date: 20180321
  Serious: Yes (Hospitalization)
  Sender: FDA-Public Use
  Company Number: PHHY2017BR137508

PATIENT
  Sex: Female
  Weight: 53 kg

DRUGS (2)
  1. ACLASTA [Suspect]
     Active Substance: ZOLEDRONIC ACID
     Indication: OSTEOPOROSIS
     Dosage: 1 DF (5 MG/100 ML), Q12MO
     Route: 042
  2. GLIFAGE [Concomitant]
     Active Substance: METFORMIN HYDROCHLORIDE
     Indication: DIABETES MELLITUS
     Dosage: 2 DF, QD (5 YEARS AGO)
     Route: 048

REACTIONS (5)
  - Pelvic discomfort [Unknown]
  - Spinal fracture [Recovering/Resolving]
  - Buttock injury [Recovering/Resolving]
  - Fall [Recovering/Resolving]
  - Pain [Unknown]
